FAERS Safety Report 12501391 (Version 2)
Quarter: 2016Q2

REPORT INFORMATION
  Report Type: Report from Study
  Country: US (occurrence: US)
  Receive Date: 20160627
  Receipt Date: 20160630
  Transmission Date: 20160815
  Serious: Yes (Hospitalization)
  Sender: FDA-Public Use
  Company Number: US-BAYER-2016-116692

PATIENT
  Age: 53 Year
  Sex: Female
  Weight: 46.71 kg

DRUGS (4)
  1. ADEMPAS [Suspect]
     Active Substance: RIOCIGUAT
     Indication: PULMONARY ARTERIAL HYPERTENSION
     Dosage: 1 MG, TID
     Route: 048
  2. TYVASO [Suspect]
     Active Substance: TREPROSTINIL
     Indication: PULMONARY ARTERIAL HYPERTENSION
     Dosage: 18-54 MCG A DAY (3-9 BREATHS) QID
     Route: 055
     Dates: start: 20120828
  3. ADEMPAS [Suspect]
     Active Substance: RIOCIGUAT
     Indication: PULMONARY ARTERIAL HYPERTENSION
     Dosage: UNK
     Route: 048
     Dates: start: 20140626
  4. LETAIRIS [Concomitant]
     Active Substance: AMBRISENTAN
     Indication: PULMONARY ARTERIAL HYPERTENSION
     Dosage: UNK

REACTIONS (8)
  - Seizure [None]
  - Blood magnesium decreased [None]
  - Abdominal pain upper [None]
  - Blood sodium decreased [None]
  - Blood potassium decreased [None]
  - Blood magnesium decreased [None]
  - Blood potassium decreased [None]
  - Blood sodium decreased [None]

NARRATIVE: CASE EVENT DATE: 20160517
